FAERS Safety Report 6665923-1 (Version None)
Quarter: 2010Q1

REPORT INFORMATION
  Report Type: 
  Country: None (occurrence: None)
  Receive Date: 20100326
  Receipt Date: 20090714
  Transmission Date: 20100710
  Serious: Yes (Other)
  Sender: FDA-Public Use
  Company Number: 2009SU0155FU1

PATIENT
  Age: 79 Year
  Sex: Male
  Weight: 77.1115 kg

DRUGS (7)
  1. SULAR [Suspect]
     Indication: HYPERTENSION
     Dosage: 8.5 MG, DAILY17 MG, DAILY
     Dates: start: 20070101, end: 20090501
  2. SULAR [Suspect]
     Indication: HYPERTENSION
     Dates: start: 20090501
  3. ZOCOR [Concomitant]
  4. FLOMAX [Concomitant]
  5. COUMADIN [Concomitant]
  6. . [Concomitant]
  7. . [Concomitant]

REACTIONS (4)
  - ANXIETY [None]
  - DEPRESSION [None]
  - DRUG INEFFECTIVE [None]
  - INSOMNIA [None]
